FAERS Safety Report 18293094 (Version 1)
Quarter: 2020Q3

REPORT INFORMATION
  Report Type: Spontaneous
  Country: US (occurrence: US)
  Receive Date: 20200921
  Receipt Date: 20200921
  Transmission Date: 20201103
  Serious: No
  Sender: FDA-Public Use
  Company Number: None

PATIENT
  Age: 60 Year
  Sex: Female

DRUGS (1)
  1. TECFIDERA [Suspect]
     Active Substance: DIMETHYL FUMARATE
     Route: 048

REACTIONS (8)
  - Dyspepsia [None]
  - Chest pain [None]
  - Decreased appetite [None]
  - Therapy change [None]
  - Nausea [None]
  - Abdominal pain [None]
  - Weight decreased [None]
  - Flushing [None]

NARRATIVE: CASE EVENT DATE: 20200916
